FAERS Safety Report 5021146-3 (Version None)
Quarter: 2006Q2

REPORT INFORMATION
  Report Type: 
  Country: None (occurrence: None)
  Receive Date: 20060608
  Receipt Date: 20060430
  Transmission Date: 20061013
  Serious: Yes (Disabling)
  Sender: FDA-Public Use
  Company Number: 2006AP02369

PATIENT
  Age: 27843 Day
  Sex: Female

DRUGS (9)
  1. IRESSA [Suspect]
     Indication: NON-SMALL CELL LUNG CANCER
     Route: 048
     Dates: start: 20060118
  2. MUCODYNE [Concomitant]
     Indication: SPUTUM RETENTION
     Route: 048
     Dates: start: 20051216, end: 20060522
  3. MUCODYNE [Concomitant]
     Indication: COUGH
     Route: 048
     Dates: start: 20051216, end: 20060522
  4. MUCODYNE [Concomitant]
     Route: 048
     Dates: start: 20060523
  5. MUCODYNE [Concomitant]
     Route: 048
     Dates: start: 20060523
  6. MUCOSOLVAN [Concomitant]
     Indication: SPUTUM RETENTION
     Route: 048
     Dates: start: 20051216
  7. MUCOSOLVAN [Concomitant]
     Indication: COUGH
     Route: 048
     Dates: start: 20051216
  8. GASTER D [Concomitant]
     Indication: GASTROINTESTINAL DISORDER
     Route: 048
     Dates: start: 20051216
  9. LOXONIN [Concomitant]
     Indication: CANCER PAIN
     Route: 048
     Dates: start: 20051227, end: 20060220

REACTIONS (4)
  - FEMUR FRACTURE [None]
  - HAEMORRHAGIC DIATHESIS [None]
  - PATHOLOGICAL FRACTURE [None]
  - PLATELET COUNT INCREASED [None]
